FAERS Safety Report 8029706-2 (Version None)
Quarter: 2012Q1

REPORT INFORMATION
  Report Type: 
  Country: None (occurrence: None)
  Receive Date: 20120109
  Receipt Date: 20111228
  Transmission Date: 20120608
  Serious: Yes (Hospitalization)
  Sender: FDA-Public Use
  Company Number: DE-PFIZER INC-2012001979

PATIENT
  Sex: Male

DRUGS (1)
  1. PANTOPRAZOLE SODIUM [Suspect]
     Route: 065

REACTIONS (1)
  - IMPAIRED HEALING [None]
